FAERS Safety Report 9819495 (Version 4)
Quarter: 2015Q2

REPORT INFORMATION
  Report Type: Report from Study
  Country: US (occurrence: US)
  Receive Date: 20140115
  Receipt Date: 20150605
  Transmission Date: 20150821
  Serious: Yes (Death, Life-Threatening, Hospitalization)
  Sender: FDA-Public Use
  Company Number: US-BAYER-2014-003671

PATIENT
  Age: 56 Year
  Sex: Female
  Weight: 100 kg

DRUGS (8)
  1. ADEMPAS [Suspect]
     Active Substance: RIOCIGUAT
     Indication: PULMONARY HYPERTENSION
     Dosage: UNK
     Dates: start: 20140228
  2. DIGOXIN. [Concomitant]
     Active Substance: DIGOXIN
  3. ADEMPAS [Interacting]
     Active Substance: RIOCIGUAT
     Indication: PULMONARY HYPERTENSION
     Dosage: 2.0 MG, TID
     Route: 048
  4. PRADAXA [Concomitant]
     Active Substance: DABIGATRAN ETEXILATE MESYLATE
     Dosage: 150 MG, BID
  5. POTASSIUM CHLORIDE. [Concomitant]
     Active Substance: POTASSIUM CHLORIDE
  6. ADEMPAS [Interacting]
     Active Substance: RIOCIGUAT
     Indication: PULMONARY HYPERTENSION
     Dosage: 2.5 MG, TID
     Dates: start: 20140228, end: 20150521
  7. ISOSORBIDE [Interacting]
     Active Substance: ISOSORBIDE
     Indication: PULMONARY HYPERTENSION
     Dosage: 120 MG, TID
  8. EPLERENONE. [Concomitant]
     Active Substance: EPLERENONE
     Dosage: 50 MG, QD

REACTIONS (7)
  - Hypotension [Recovering/Resolving]
  - Drug interaction [None]
  - Loss of consciousness [None]
  - Respiratory arrest [Recovering/Resolving]
  - Death [Fatal]
  - Dyspnoea [None]
  - Fall [None]

NARRATIVE: CASE EVENT DATE: 20131231
